FAERS Safety Report 6501297-4 (Version None)
Quarter: 2009Q4

REPORT INFORMATION
  Report Type: 
  Country: None (occurrence: None)
  Receive Date: 20091216
  Receipt Date: 20091208
  Transmission Date: 20100525
  Serious: Yes (Death, Life-Threatening, Other)
  Sender: FDA-Public Use
  Company Number: US-BAXTER-2009BH016993

PATIENT
  Age: 71 Year
  Sex: Female

DRUGS (9)
  1. HEPARIN SODIUM INJECTION [Suspect]
     Indication: CATHETERISATION CARDIAC
     Route: 042
     Dates: start: 20071115, end: 20071115
  2. HEPARIN SODIUM INJECTION [Suspect]
     Indication: CAROTID ENDARTERECTOMY
     Route: 042
     Dates: start: 20071115, end: 20071115
  3. HEPARIN SODIUM INJECTION [Suspect]
     Indication: CORONARY ARTERY BYPASS
     Route: 042
     Dates: start: 20071115, end: 20071115
  4. HEPARIN SODIUM INJECTION [Suspect]
     Route: 042
     Dates: start: 20071116, end: 20071116
  5. HEPARIN SODIUM INJECTION [Suspect]
     Route: 042
     Dates: start: 20071116, end: 20071116
  6. HEPARIN SODIUM INJECTION [Suspect]
     Route: 042
     Dates: start: 20071116, end: 20071116
  7. HEPARIN SODIUM INJECTION [Suspect]
     Route: 042
     Dates: start: 20071117, end: 20071118
  8. HEPARIN SODIUM INJECTION [Suspect]
     Route: 042
     Dates: start: 20071117, end: 20071118
  9. HEPARIN SODIUM INJECTION [Suspect]
     Route: 042
     Dates: start: 20071117, end: 20071118

REACTIONS (16)
  - ANAEMIA [None]
  - ARRHYTHMIA [None]
  - ATELECTASIS [None]
  - CARDIO-RESPIRATORY ARREST [None]
  - CORONARY ARTERY BYPASS [None]
  - CORONARY ARTERY DISEASE [None]
  - HYPOTENSION [None]
  - LEUKOCYTOSIS [None]
  - OEDEMA [None]
  - PLATELET COUNT DECREASED [None]
  - PULMONARY EMBOLISM [None]
  - PYREXIA [None]
  - RENAL FAILURE ACUTE [None]
  - RESPIRATORY FAILURE [None]
  - SHOCK [None]
  - TACHYCARDIA [None]
